FAERS Safety Report 8976129 (Version 1)
Quarter: 2012Q4

REPORT INFORMATION
  Report Type: 
  Country: GB (occurrence: GB)
  Receive Date: 20121220
  Receipt Date: 20121220
  Transmission Date: 20130627
  Serious: Yes (Hospitalization)
  Sender: FDA-Public Use
  Company Number: GB-TEVA-375869ISR

PATIENT
  Age: 70 Year
  Sex: Female
  Weight: 47 kg

DRUGS (5)
  1. VINCRISTINE [Suspect]
     Indication: B-CELL LYMPHOMA
     Route: 042
     Dates: start: 20120619
  2. PREDNISOLONE [Suspect]
     Indication: B-CELL LYMPHOMA
     Route: 065
     Dates: start: 20120530
  3. CYCLOPHOSPHAMIDE [Suspect]
     Indication: B-CELL LYMPHOMA
     Route: 042
     Dates: start: 20120530
  4. RITUXIMAB [Suspect]
     Indication: B-CELL LYMPHOMA
     Dosage: .0505 mg/ml Daily;
     Route: 041
     Dates: start: 20120530
  5. PARACETAMOL [Concomitant]
     Indication: ABDOMINAL PAIN

REACTIONS (2)
  - Neutropenic sepsis [Recovered/Resolved]
  - Cholecystitis [Recovered/Resolved]
